FAERS Safety Report 8043261-2 (Version None)
Quarter: 2012Q1

REPORT INFORMATION
  Report Type: 
  Country: None (occurrence: None)
  Receive Date: 20120112
  Receipt Date: 20120106
  Transmission Date: 20120608
  Serious: Yes (Hospitalization, Congenital Anomaly)
  Sender: FDA-Public Use
  Company Number: US-GLAXOSMITHKLINE-A0681272A

PATIENT
  Sex: Male
  Weight: 2.9 kg

DRUGS (6)
  1. ZOLOFT [Concomitant]
     Route: 064
     Dates: start: 19990101, end: 20010101
  2. ZYPREXA [Concomitant]
     Route: 064
  3. PAXIL [Suspect]
     Indication: DEPRESSION
     Dosage: 20MG PER DAY
     Route: 064
     Dates: start: 19990101, end: 20010101
  4. MULTI-VITAMINS [Concomitant]
     Route: 064
  5. SONATA [Concomitant]
     Route: 064
  6. MACROBID [Concomitant]
     Route: 064

REACTIONS (5)
  - FOETAL EXPOSURE DURING PREGNANCY [None]
  - VENTRICULAR SEPTAL DEFECT [None]
  - MULTIPLE CONGENITAL ABNORMALITIES [None]
  - ATRIAL SEPTAL DEFECT [None]
  - DIGEORGE'S SYNDROME [None]
